FAERS Safety Report 20050653 (Version 3)
Quarter: 2021Q4

REPORT INFORMATION
  Report Type: Spontaneous
  Country: US (occurrence: US)
  Receive Date: 20211109
  Receipt Date: 20211214
  Transmission Date: 20220303
  Serious: Yes (Death, Hospitalization, Other)
  Sender: FDA-Public Use
  Company Number: US-BRISTOL-MYERS SQUIBB COMPANY-BMS-2021-118751

PATIENT
  Age: 70 Year
  Sex: Female
  Weight: 84.5 kg

DRUGS (11)
  1. ELIQUIS [Suspect]
     Active Substance: APIXABAN
     Indication: Product used for unknown indication
     Dosage: UNK
     Route: 065
  2. PLAVIX [Suspect]
     Active Substance: CLOPIDOGREL BISULFATE
     Indication: Coronary artery disease
     Dosage: 75 MILLIGRAM, QD
     Route: 065
     Dates: start: 20200314
  3. INCLISIRAN [Suspect]
     Active Substance: INCLISIRAN
     Indication: Arteriosclerosis
     Dosage: 300 MILLIGRAM, Q6MO
     Route: 058
     Dates: start: 20190617
  4. INCLISIRAN [Suspect]
     Active Substance: INCLISIRAN
     Dosage: 300 MILLIGRAM, Q6MO
     Route: 058
     Dates: start: 20190617
  5. ASPIRIN [Suspect]
     Active Substance: ASPIRIN
     Indication: Coronary artery disease
     Dosage: 325 MILLIGRAM, QD
     Route: 065
     Dates: start: 20210721
  6. ATORVASTATIN [Suspect]
     Active Substance: ATORVASTATIN
     Indication: Product used for unknown indication
     Dosage: UNK
     Route: 065
     Dates: start: 20160801
  7. CARVEDILOL [Suspect]
     Active Substance: CARVEDILOL
     Indication: Product used for unknown indication
     Dosage: UNK
     Route: 065
     Dates: start: 202105
  8. ISOSORBIDE MONONITRATE [Suspect]
     Active Substance: ISOSORBIDE MONONITRATE
     Indication: Product used for unknown indication
     Dosage: UNK
     Route: 065
     Dates: start: 20210514
  9. ZETIA [Concomitant]
     Active Substance: EZETIMIBE
     Indication: Product used for unknown indication
     Dosage: UNK
     Route: 065
     Dates: start: 20140607
  10. DOXYCYCLINE [Concomitant]
     Active Substance: DOXYCYCLINE
     Indication: Product used for unknown indication
     Dosage: UNK
     Route: 065
     Dates: start: 20210408, end: 20210920
  11. VANTIN [Concomitant]
     Active Substance: CEFPODOXIME PROXETIL
     Indication: Product used for unknown indication
     Dosage: UNK
     Route: 065
     Dates: start: 20210408, end: 20210920

REACTIONS (13)
  - Myocardial infarction [Fatal]
  - Osteomyelitis [Not Recovered/Not Resolved]
  - Blood loss anaemia [Recovered/Resolved]
  - Acute myocardial infarction [Recovered/Resolved]
  - Asthenia [Unknown]
  - Dyspnoea [Unknown]
  - Melaena [Unknown]
  - Thrombocytopenia [Unknown]
  - Gastritis erosive [Unknown]
  - Gastric disorder [Unknown]
  - Hypervolaemia [Unknown]
  - Hypoglycaemia [Unknown]
  - Varices oesophageal [Unknown]

NARRATIVE: CASE EVENT DATE: 20210920
